FAERS Safety Report 9865308 (Version 2)
Quarter: 2014Q1

REPORT INFORMATION
  Report Type: Spontaneous
  Country: US (occurrence: US)
  Receive Date: 20140203
  Receipt Date: 20140203
  Transmission Date: 20141002
  Serious: No
  Sender: FDA-Public Use
  Company Number: US-ALLERGAN-1300828US

PATIENT
  Age: 79 Year
  Sex: Female

DRUGS (14)
  1. RESTASIS [Suspect]
     Indication: DRY EYE
     Dosage: 2 GTT, BID
     Route: 047
     Dates: start: 201212, end: 20130118
  2. MOBIC [Concomitant]
     Indication: SJOGREN^S SYNDROME
     Dosage: UNK
  3. MOBIC [Concomitant]
     Indication: OSTEOARTHRITIS
  4. AMLODIPINE [Concomitant]
     Indication: HYPERTELORISM OF ORBIT
     Dosage: UNK
  5. ANALOPRIL [Concomitant]
     Indication: HYPERTENSION
     Dosage: UNK
  6. METOPROLOL [Concomitant]
     Indication: HYPERTENSION
     Dosage: UNK
  7. ISOSORBIDE [Concomitant]
     Indication: HYPERTENSION
     Dosage: UNK
  8. PATANOL [Concomitant]
     Indication: DRY EYE
     Dosage: UNK
  9. TRAMADOL [Concomitant]
     Indication: PAIN
     Dosage: UNK
  10. FLUTICASONE [Concomitant]
     Indication: SEASONAL ALLERGY
     Dosage: UNK UNK, PRN
     Route: 045
  11. OMEPRAZOLE [Concomitant]
     Indication: GASTROOESOPHAGEAL REFLUX DISEASE
     Dosage: UNK
  12. THERATEARS                         /00007001/ [Concomitant]
     Indication: DRY EYE
     Dosage: UNK UNK, PRN
     Route: 047
  13. MURO 128                           /00075401/ [Concomitant]
     Indication: DRY EYE
     Dosage: UNK UNK, QHS
     Route: 047
  14. PLAQUENIL                          /00072601/ [Concomitant]
     Indication: OSTEOARTHRITIS
     Dosage: UNK

REACTIONS (2)
  - Visual impairment [Recovered/Resolved]
  - Eye swelling [Recovered/Resolved]
